FAERS Safety Report 4640268-X (Version None)
Quarter: 2005Q2

REPORT INFORMATION
  Report Type: 
  Country: None (occurrence: None)
  Receive Date: 20050420
  Receipt Date: 20050412
  Transmission Date: 20051028
  Serious: Yes (Death)
  Sender: FDA-Public Use
  Company Number: GB-GLAXOSMITHKLINE-B0377605A

PATIENT
  Age: 68 Year
  Sex: Female

DRUGS (2)
  1. REQUIP [Suspect]
     Indication: PARKINSON'S DISEASE
     Route: 048
  2. AMITRIPTYLINE HCL TAB [Concomitant]
     Route: 065

REACTIONS (4)
  - DEATH [None]
  - DIZZINESS [None]
  - DYSPNOEA [None]
  - ILL-DEFINED DISORDER [None]
